FAERS Safety Report 21401957 (Version 2)
Quarter: 2022Q4

REPORT INFORMATION
  Report Type: Spontaneous
  Country: US (occurrence: US)
  Receive Date: 20221003
  Receipt Date: 20221005
  Transmission Date: 20230113
  Serious: No
  Sender: FDA-Public Use
  Company Number: US-NOVARTISTESTPH-NVSC2022US221213

PATIENT
  Sex: Male

DRUGS (1)
  1. MEKINIST [Suspect]
     Active Substance: TRAMETINIB DIMETHYL SULFOXIDE
     Indication: Histiocytosis
     Dosage: 0.5 MG, QD
     Route: 048
     Dates: start: 202209

REACTIONS (5)
  - Acne [Unknown]
  - Nail bed disorder [Unknown]
  - Abdominal distension [Unknown]
  - Abdominal pain upper [Unknown]
  - Product use in unapproved indication [Unknown]
